FAERS Safety Report 19695780 (Version 1)
Quarter: 2021Q3

REPORT INFORMATION
  Report Type: Other
  Country: US (occurrence: US)
  Receive Date: 20210812
  Receipt Date: 20210812
  Transmission Date: 20211014
  Serious: Yes (Other)
  Sender: FDA-Public Use
  Company Number: US-APOTEX-2021AP033377

PATIENT
  Age: 59 Year
  Sex: Male

DRUGS (2)
  1. RANITIDINE TABLETS [Suspect]
     Active Substance: RANITIDINE HYDROCHLORIDE
     Indication: URTICARIA
     Dosage: PERIODS OF NON?USE (AT LEAST 3 MONTHS WITHOUT USE)
     Route: 065
     Dates: start: 200506, end: 201301
  2. ZANTAC [Suspect]
     Active Substance: RANITIDINE HYDROCHLORIDE
     Indication: URTICARIA
     Dosage: DAILY
     Route: 065
     Dates: start: 200506, end: 201301

REACTIONS (3)
  - Colorectal cancer [Not Recovered/Not Resolved]
  - Prostate cancer [Not Recovered/Not Resolved]
  - Renal cancer [Not Recovered/Not Resolved]

NARRATIVE: CASE EVENT DATE: 20140128
